FAERS Safety Report 7559362-9 (Version None)
Quarter: 2011Q2

REPORT INFORMATION
  Report Type: 
  Country: None (occurrence: None)
  Receive Date: 20110621
  Receipt Date: 20110607
  Transmission Date: 20111010
  Serious: Yes (Other)
  Sender: FDA-Public Use
  Company Number: US-RANBAXY-2011RR-45429

PATIENT
  Sex: Female

DRUGS (29)
  1. SPIRIVA [Concomitant]
     Indication: PRODUCT USED FOR UNKNOWN INDICATION
     Dosage: 18 UG, UNK
     Route: 055
     Dates: start: 20100416
  2. AMBIEN [Concomitant]
     Indication: PRODUCT USED FOR UNKNOWN INDICATION
     Dosage: 5 MG, PRN
     Route: 048
     Dates: start: 20100416
  3. MUCINEX [Concomitant]
     Indication: PRODUCT USED FOR UNKNOWN INDICATION
     Dosage: 1200 MG, BID
     Route: 048
     Dates: start: 20100420
  4. MYCOSTATIN [Concomitant]
     Indication: PRODUCT USED FOR UNKNOWN INDICATION
     Dosage: 10 ML, QID
     Route: 048
     Dates: start: 20100423
  5. DILANTIN [Concomitant]
     Indication: PRODUCT USED FOR UNKNOWN INDICATION
     Dosage: 100 MG, BID
     Route: 048
     Dates: start: 20100416
  6. LEVAQUIN [Suspect]
     Indication: CHRONIC OBSTRUCTIVE PULMONARY DISEASE
     Dosage: UNK
     Route: 048
     Dates: start: 20100416, end: 20100423
  7. SOLU-MEDROL [Suspect]
     Dosage: 30 MG, QID
     Dates: start: 20100417
  8. SOLU-MEDROL [Suspect]
     Dosage: 40 MG, BID
     Dates: start: 20100423
  9. CALCIUM CARBONATE [Concomitant]
     Indication: PRODUCT USED FOR UNKNOWN INDICATION
     Dosage: 1 DF, BID
     Route: 048
     Dates: start: 20100416
  10. PROTONIX [Concomitant]
     Indication: PRODUCT USED FOR UNKNOWN INDICATION
     Dosage: 40 MG, UNK
     Route: 048
     Dates: start: 20100416
  11. NOVOLOG [Concomitant]
     Indication: PRODUCT USED FOR UNKNOWN INDICATION
     Dosage: UNK
     Route: 058
     Dates: start: 20100419
  12. FORADIL [Concomitant]
     Indication: PRODUCT USED FOR UNKNOWN INDICATION
     Dosage: 12 UG, BID
     Route: 055
     Dates: start: 20100416
  13. CIPROFLOXACIN [Suspect]
     Indication: INFECTION
     Dosage: UNK
     Dates: start: 20090201
  14. CIPROFLOXACIN [Suspect]
     Dosage: UNK
     Dates: start: 20090501
  15. SOLU-MEDROL [Suspect]
     Dosage: 60 MG, TID
     Dates: start: 20100421
  16. AMOXICILLIN [Concomitant]
     Indication: BRONCHITIS
     Dosage: UNK
     Dates: start: 20100401
  17. ALBUTEROL SULPHATE [Concomitant]
     Indication: PRODUCT USED FOR UNKNOWN INDICATION
     Dosage: 2.5 MG, Q4H
     Route: 055
     Dates: start: 20100416
  18. LOVENOX [Concomitant]
     Indication: PRODUCT USED FOR UNKNOWN INDICATION
     Dosage: 40 MG, UNK
     Route: 058
     Dates: start: 20100416
  19. XOPENEX [Concomitant]
     Indication: PRODUCT USED FOR UNKNOWN INDICATION
     Dosage: 0.63 MG, QID
     Route: 055
     Dates: start: 20100419
  20. ATIVAN [Concomitant]
     Indication: PRODUCT USED FOR UNKNOWN INDICATION
     Dosage: 0.5 MG, QID
     Route: 048
     Dates: start: 20100416
  21. SOLU-MEDROL [Suspect]
     Indication: PRODUCT USED FOR UNKNOWN INDICATION
     Dosage: 60 MG, QID
     Dates: start: 20100416
  22. SOLU-MEDROL [Suspect]
     Dosage: 4 MG, UNK
     Dates: start: 20091230
  23. FLOVENT [Concomitant]
     Indication: PRODUCT USED FOR UNKNOWN INDICATION
     Dosage: UNK
     Route: 055
     Dates: start: 20100416
  24. DETROL LA [Concomitant]
     Indication: PRODUCT USED FOR UNKNOWN INDICATION
     Dosage: 4 MG, UNK
     Route: 048
     Dates: start: 20100416
  25. ALBUTEROL SULPHATE [Concomitant]
     Dosage: 2.5 MG, Q2H
     Route: 055
     Dates: start: 20100416
  26. TYLENOL-500 [Concomitant]
     Indication: PRODUCT USED FOR UNKNOWN INDICATION
     Dosage: 650 MG, TID
     Route: 048
     Dates: start: 20100421
  27. ARFORMOTEROL TARTRATE [Concomitant]
     Indication: PRODUCT USED FOR UNKNOWN INDICATION
     Dosage: 15 UG, BID
     Route: 055
     Dates: start: 20100424
  28. PULMICORT [Concomitant]
     Indication: PRODUCT USED FOR UNKNOWN INDICATION
     Dosage: 0.5 MG, BID
     Route: 055
     Dates: start: 20100424
  29. PREDNISOLONE [Suspect]
     Indication: CHRONIC OBSTRUCTIVE PULMONARY DISEASE
     Dosage: 10 MG, UNK
     Route: 048
     Dates: start: 20080101

REACTIONS (2)
  - PLANTAR FASCIITIS [None]
  - TENDON RUPTURE [None]
